FAERS Safety Report 22097284 (Version 1)
Quarter: 2023Q1

REPORT INFORMATION
  Report Type: Spontaneous
  Country: GB (occurrence: GB)
  Receive Date: 20230315
  Receipt Date: 20230315
  Transmission Date: 20230417
  Serious: Yes (Other)
  Sender: FDA-Public Use
  Company Number: None

PATIENT
  Age: 61 Year
  Sex: Female
  Weight: 129 kg

DRUGS (36)
  1. MOLNUPIRAVIR [Suspect]
     Active Substance: MOLNUPIRAVIR
     Indication: Ill-defined disorder
     Dosage: UNK
     Route: 048
     Dates: start: 20230301, end: 20230303
  2. ALLOPURINOL [Concomitant]
     Active Substance: ALLOPURINOL
     Dates: start: 20221122
  3. AMIODARONE [Concomitant]
     Active Substance: AMIODARONE
     Dosage: STOP FEB 2023
     Dates: start: 20221122, end: 202302
  4. ATROVENT [Concomitant]
     Active Substance: IPRATROPIUM BROMIDE
     Dosage: USE AS DIRECTED
     Dates: start: 20230116, end: 20230117
  5. CANAGLIFLOZIN [Concomitant]
     Active Substance: CANAGLIFLOZIN
     Dates: start: 20221122
  6. CANDESARTAN [Concomitant]
     Active Substance: CANDESARTAN
     Dosage: 1 DOSAGE FORM, QD
     Dates: start: 20221122
  7. CETIRIZINE [Concomitant]
     Active Substance: CETIRIZINE HYDROCHLORIDE
     Indication: Seasonal allergy
     Dosage: ONE TABLET ONCE DAILY IF NEEDED FOR HAYFEVER S...
     Dates: start: 20221122
  8. CHLORAMPHENICOL [Concomitant]
     Active Substance: CHLORAMPHENICOL
     Dosage: APPLY EVERY 2 HOURS DURING DAY FOR FIRST 48 HOURS
     Dates: start: 20230208
  9. CLOTRIMAZOLE [Concomitant]
     Active Substance: CLOTRIMAZOLE
     Dosage: ONE APPLICATORFUL TO BE INSERTED AT NIGHT
     Dates: start: 20230206, end: 20230207
  10. POLYETHYLENE GLYCOL 3350\POTASSIUM CHLORIDE\SODIUM BICARBONATE\SODIUM [Concomitant]
     Active Substance: POLYETHYLENE GLYCOL 3350\POTASSIUM CHLORIDE\SODIUM BICARBONATE\SODIUM CHLORIDE
     Dosage: USE ONE OR TWO TWICE A DAY
     Dates: start: 20221122
  11. DOXYCYCLINE [Concomitant]
     Active Substance: DOXYCYCLINE
     Dosage: TWO CAPSULES ON THE FIRST DAY, THEN ONE DAILY, ...
     Dates: start: 20230111, end: 20230118
  12. EXEMESTANE [Concomitant]
     Active Substance: EXEMESTANE
     Dosage: 1 DOSAGE FORM
     Dates: start: 20221122
  13. FLUCLOXACILLIN [Concomitant]
     Active Substance: FLUCLOXACILLIN
     Dosage: 1 DOSAGE FORM
     Dates: start: 20230227
  14. FUROSEMIDE [Concomitant]
     Active Substance: FUROSEMIDE
     Dosage: 5 IN MORNING AND 4 AT LUNCHTIME.
     Dates: start: 20221122
  15. FYBOGEL [Concomitant]
     Active Substance: HERBALS\PLANTAGO OVATA SEED
     Dosage: SACHET
     Dates: start: 20221122
  16. NITROGLYCERIN [Concomitant]
     Active Substance: NITROGLYCERIN
     Dosage: SPRAY 1 OR 2 SPRAYS UNDER THE TONGUE WHEN CHEST...
     Route: 060
     Dates: start: 20230113, end: 20230114
  17. INSULIN HUMAN [Concomitant]
     Active Substance: INSULIN HUMAN
     Dosage: USE AS DIRECTED
     Dates: start: 20221122
  18. HYALURONATE SODIUM [Concomitant]
     Active Substance: HYALURONATE SODIUM
     Dosage: USE AS DIRECTED
     Dates: start: 20221122
  19. LANSOPRAZOLE [Concomitant]
     Active Substance: LANSOPRAZOLE
     Dosage: 1 DOSAGE FORM
     Dates: start: 20221122
  20. METOLAZONE [Concomitant]
     Active Substance: METOLAZONE
     Dosage: USE AS DIRECTED BY HEART FAILURE NURSES
     Dates: start: 20221122
  21. MONTELUKAST [Concomitant]
     Active Substance: MONTELUKAST SODIUM
     Dosage: AT NIGHT
     Dates: start: 20221122
  22. NYSTATIN [Concomitant]
     Active Substance: NYSTATIN
     Dosage: 1 MILLILITER
     Dates: start: 20221220, end: 20221227
  23. NYSTATIN [Concomitant]
     Active Substance: NYSTATIN
     Dosage: FOR 1 WEEK
     Dates: start: 20230227
  24. ACETAMINOPHEN [Concomitant]
     Active Substance: ACETAMINOPHEN
     Indication: Pain
     Dosage: ONE OR TWO TABLETS UPTO FOUR TIMES DAILY FOR PAIN
     Dates: start: 20221122
  25. PENICILLIN V [Concomitant]
     Active Substance: PENICILLIN V
     Dosage: FOR 10 DAYS
     Dates: start: 20230215, end: 20230225
  26. PRED FORTE [Concomitant]
     Active Substance: PREDNISOLONE ACETATE
     Dosage: ONE DROP FOUR TIMES A DAY FOR ONE WEEK , THEN T...
     Dates: start: 20230213
  27. PREDNISOLONE [Concomitant]
     Active Substance: PREDNISOLONE
     Dosage: IN THE MORNING EVERY DAY FOR ONE WE...
     Dates: start: 20230111, end: 20230118
  28. PROCHLORPERAZINE [Concomitant]
     Active Substance: PROCHLORPERAZINE
     Dosage: USE AS DIRECTED
     Dates: start: 20221122
  29. ALBUTEROL [Concomitant]
     Active Substance: ALBUTEROL
     Route: 055
     Dates: start: 20221215
  30. ALBUTEROL [Concomitant]
     Active Substance: ALBUTEROL
     Dosage: 3-4 TIMES/DAY
     Route: 055
     Dates: start: 20221122, end: 20230121
  31. SALIVIX [Concomitant]
     Dosage: USE AS DIRECTED  AS REQUIRED
     Dates: start: 20230110, end: 20230111
  32. POTASSIUM [Concomitant]
     Active Substance: POTASSIUM
     Dosage: OR AS DIRECTED BY HEART FAILURE NURSES
     Dates: start: 20221122
  33. SERETIDE [Concomitant]
     Active Substance: FLUTICASONE PROPIONATE\SALMETEROL XINAFOATE
     Dosage: 2 DOSAGE FORM
     Route: 055
     Dates: start: 20221122
  34. SPIRONOLACTONE [Concomitant]
     Active Substance: SPIRONOLACTONE
     Dosage: 1 DOSAGE FORM
     Dates: start: 20221122
  35. THEICAL D3 [Concomitant]
     Dates: start: 20221122
  36. WARFARIN SODIUM [Concomitant]
     Active Substance: WARFARIN SODIUM
     Dosage: TAKE AS DIRECTED BY INR RESULT, IN THE EVENING,...
     Dates: start: 20221122

REACTIONS (1)
  - Swollen tongue [Recovered/Resolved]

NARRATIVE: CASE EVENT DATE: 20230301
